FAERS Safety Report 6216926-2 (Version None)
Quarter: 2009Q2

REPORT INFORMATION
  Report Type: 
  Country: None (occurrence: None)
  Receive Date: 20090605
  Receipt Date: 20090526
  Transmission Date: 20091009
  Serious: Yes (Hospitalization)
  Sender: FDA-Public Use
  Company Number: FR-MERCK-0905FRA00085

PATIENT
  Age: 64 Year
  Sex: Female

DRUGS (9)
  1. ZOCOR [Suspect]
     Indication: HYPERCHOLESTEROLAEMIA
     Route: 048
     Dates: start: 20041201, end: 20051001
  2. FLUVASTATIN SODIUM [Suspect]
     Indication: HYPERCHOLESTEROLAEMIA
     Route: 048
     Dates: start: 20020101, end: 20030101
  3. FLUVASTATIN SODIUM [Suspect]
     Route: 048
     Dates: start: 20031201, end: 20041101
  4. EZETIMIBE [Suspect]
     Indication: HYPERCHOLESTEROLAEMIA
     Route: 048
     Dates: start: 20051101, end: 20060301
  5. FENOFIBRATE [Suspect]
     Indication: HYPERCHOLESTEROLAEMIA
     Route: 048
     Dates: start: 20060301, end: 20061201
  6. ROSUVASTATIN CALCIUM [Suspect]
     Indication: HYPERCHOLESTEROLAEMIA
     Route: 048
     Dates: start: 20070101, end: 20070601
  7. CHOLESTYRAMINE RESIN [Suspect]
     Indication: HYPERCHOLESTEROLAEMIA
     Route: 048
     Dates: start: 20070701, end: 20080501
  8. HOMEOPATHIC MEDICATIONS (UNSPECIFIED) [Suspect]
     Route: 065
     Dates: end: 20081117
  9. RED YEAST [Suspect]
     Indication: HYPERCHOLESTEROLAEMIA
     Route: 065
     Dates: start: 20080501, end: 20081117

REACTIONS (4)
  - ARTHRALGIA [None]
  - MYALGIA [None]
  - ORGANISING PNEUMONIA [None]
  - PNEUMONIA [None]
